FAERS Safety Report 8759619 (Version 1)
Quarter: 2012Q4

REPORT INFORMATION
  Report Type: 
  Country: US (occurrence: US)
  Receive Date: 20120829
  Receipt Date: 20120829
  Transmission Date: 20130627
  Serious: No
  Sender: FDA-Public Use
  Company Number: US-GLAXOSMITHKLINE-A0939957A

PATIENT
  Sex: Female

DRUGS (1)
  1. MALARONE [Suspect]
     Route: 065

REACTIONS (2)
  - Type IV hypersensitivity reaction [Unknown]
  - Drug hypersensitivity [Unknown]
